FAERS Safety Report 19362885 (Version 1)
Quarter: 2021Q2

REPORT INFORMATION
  Report Type: Spontaneous
  Country: FR (occurrence: FR)
  Receive Date: 20210602
  Receipt Date: 20210602
  Transmission Date: 20210717
  Serious: Yes (Hospitalization)
  Sender: FDA-Public Use
  Company Number: NVSC2021FR117339

PATIENT
  Age: 87 Year
  Sex: Female
  Weight: 44.6 kg

DRUGS (1)
  1. LEVOFLOXACIN. [Suspect]
     Active Substance: LEVOFLOXACIN
     Indication: DYSPNOEA
     Dosage: UNK
     Route: 065
     Dates: start: 20210426

REACTIONS (1)
  - Deep vein thrombosis [Not Recovered/Not Resolved]

NARRATIVE: CASE EVENT DATE: 20210506
